FAERS Safety Report 17367817 (Version 1)
Quarter: 2020Q1

REPORT INFORMATION
  Report Type: Report from Study
  Country: FI (occurrence: FI)
  Receive Date: 20200204
  Receipt Date: 20200204
  Transmission Date: 20200409
  Serious: Yes (Hospitalization, Other)
  Sender: FDA-Public Use
  Company Number: FI-MYLANLABS-2020M1006561

PATIENT
  Age: 37 Year
  Sex: Female

DRUGS (8)
  1. PERATSIN [Concomitant]
     Active Substance: PERPHENAZINE
     Dosage: 12 MILLIGRAM, QD
     Dates: start: 201911
  2. LEPONEX [Suspect]
     Active Substance: CLOZAPINE
     Indication: SCHIZOPHRENIA
     Dosage: 100 MILLIGRAM, QD
     Dates: start: 20191125, end: 20200114
  3. ARIPIPRAZOLE. [Concomitant]
     Active Substance: ARIPIPRAZOLE
     Dosage: 20 MILLIGRAM, QD
  4. LEPONEX [Suspect]
     Active Substance: CLOZAPINE
     Dosage: 12.5 MILLIGRAM, QD
     Dates: start: 20191125, end: 201911
  5. LEPONEX [Suspect]
     Active Substance: CLOZAPINE
     Dosage: TITRATED UP TO 50 MG, QD
     Dates: start: 201911, end: 2019
  6. PERATSIN [Concomitant]
     Active Substance: PERPHENAZINE
     Dosage: 20 MILLIGRAM, QD
     Dates: end: 201911
  7. LEPONEX [Suspect]
     Active Substance: CLOZAPINE
     Dosage: 150 MILLIGRAM, QD
     Dates: start: 201912, end: 20200114
  8. ARIPIPRAZOLE. [Concomitant]
     Active Substance: ARIPIPRAZOLE
     Dosage: 15 MILLIGRAM, QD

REACTIONS (3)
  - Neutrophil count decreased [Recovered/Resolved]
  - White blood cell count decreased [Recovered/Resolved]
  - Schizophrenia [Unknown]

NARRATIVE: CASE EVENT DATE: 202001
